FAERS Safety Report 25804222 (Version 1)
Quarter: 2025Q3

REPORT INFORMATION
  Report Type: Spontaneous
  Country: CA (occurrence: CA)
  Receive Date: 20250915
  Receipt Date: 20250915
  Transmission Date: 20251020
  Serious: Yes (Death, Other)
  Sender: ASCENT PHARMACEUTICALS INC
  Company Number: CA-ASCENT-2025ASLIT00216

PATIENT

DRUGS (2)
  1. IBUPROFEN [Suspect]
     Active Substance: IBUPROFEN
     Indication: Patent ductus arteriosus
     Route: 042
  2. IBUPROFEN [Suspect]
     Active Substance: IBUPROFEN
     Route: 042

REACTIONS (2)
  - Thrombocytopenia neonatal [Fatal]
  - Intraventricular haemorrhage neonatal [Fatal]
